FAERS Safety Report 6822597-4 (Version None)
Quarter: 2010Q3

REPORT INFORMATION
  Report Type: 
  Country: None (occurrence: None)
  Receive Date: 20100708
  Receipt Date: 20100625
  Transmission Date: 20110219
  Serious: No
  Sender: FDA-Public Use
  Company Number: FR-ELI_LILLY_AND_COMPANY-FR201006006789

PATIENT
  Age: 39 Year
  Sex: Female

DRUGS (3)
  1. ZYPREXA [Suspect]
     Dosage: 5 MG, DAILY (1/D)
     Route: 048
  2. DEPAMIDE [Concomitant]
     Route: 048
  3. TRIHEXYPHENIDYL HCL [Concomitant]
     Route: 048

REACTIONS (2)
  - PYREXIA [None]
  - THROMBOCYTOPENIA [None]
